FAERS Safety Report 5391596-4 (Version None)
Quarter: 2007Q3

REPORT INFORMATION
  Report Type: 
  Country: None (occurrence: None)
  Receive Date: 20070719
  Receipt Date: 20070709
  Transmission Date: 20080115
  Serious: Yes (Hospitalization)
  Sender: FDA-Public Use
  Company Number: JP-PFIZER INC-2007056502

PATIENT
  Age: 59 Year
  Sex: Female

DRUGS (7)
  1. AZULFIDINE EN-TABS [Suspect]
     Dosage: DAILY DOSE:1000MG
     Route: 048
     Dates: start: 20070621, end: 20070622
  2. PREDNISOLONE [Concomitant]
     Route: 048
  3. ALFACALCIDOL [Concomitant]
     Route: 048
  4. ALENDRONATE SODIUM [Concomitant]
     Route: 048
  5. DIART [Concomitant]
     Route: 048
  6. DRUG, UNSPECIFIED [Concomitant]
     Route: 048
  7. LOXONIN [Concomitant]

REACTIONS (2)
  - LIP SWELLING [None]
  - NAUSEA [None]
